FAERS Safety Report 18854463 (Version 1)
Quarter: 2021Q1

REPORT INFORMATION
  Report Type: Report from Study
  Country: CA (occurrence: CA)
  Receive Date: 20210205
  Receipt Date: 20210205
  Transmission Date: 20210420
  Serious: Yes (Other)
  Sender: FDA-Public Use
  Company Number: CA-GLAXOSMITHKLINE-CA2020AMR047611

PATIENT
  Age: 75 Year
  Sex: Male

DRUGS (12)
  1. AVAMYS [Suspect]
     Active Substance: FLUTICASONE FUROATE
     Indication: PRODUCT USED FOR UNKNOWN INDICATION
     Dosage: 1 PUFF(S), QD
  2. SALBUTAMOL SULPHATE [Suspect]
     Active Substance: ALBUTEROL SULFATE
     Dosage: UNK UNK, BID
  3. NUCALA [Suspect]
     Active Substance: MEPOLIZUMAB
     Indication: ASTHMA
     Dosage: 100 MG, Z,MONTHLY
     Route: 042
     Dates: start: 20200415
  4. AZITHROMYCIN ANHYDROUS. [Suspect]
     Active Substance: AZITHROMYCIN ANHYDROUS
     Indication: PRODUCT USED FOR UNKNOWN INDICATION
     Dosage: 1 DF (CO) , Z (3 TIMES A WEEK), 250 MG
     Route: 048
  5. UNIPHYL [Suspect]
     Active Substance: THEOPHYLLINE ANHYDROUS
     Indication: PRODUCT USED FOR UNKNOWN INDICATION
     Dosage: 1 DF (CO), QD, 600 MG
  6. SALBUTAMOL SULPHATE [Suspect]
     Active Substance: ALBUTEROL SULFATE
     Dosage: UNK UNK, TID
  7. VENTOLIN [Suspect]
     Active Substance: ALBUTEROL SULFATE
     Indication: PRODUCT USED FOR UNKNOWN INDICATION
     Dosage: 2.6 MG, BID, MORNING, EVENING
  8. VENTOLIN HFA [Suspect]
     Active Substance: ALBUTEROL SULFATE
     Indication: PRODUCT USED FOR UNKNOWN INDICATION
     Dosage: 2 PUFF(S), . AS NEEDED 1 TO 2 TIMES PER DAY AN AVERAGE
  9. SALBUTAMOL SULPHATE [Suspect]
     Active Substance: ALBUTEROL SULFATE
     Indication: PRODUCT USED FOR UNKNOWN INDICATION
     Dosage: 2 PUFF(S), QID AND PRN, 100 UG
  10. ZENHALE [Suspect]
     Active Substance: FORMOTEROL FUMARATE\MOMETASONE FUROATE
     Indication: PRODUCT USED FOR UNKNOWN INDICATION
     Dosage: 2 PUFF(S), BID, 2?3 INH, 200/5 MCG
  11. CALCITE D [Suspect]
     Active Substance: CALCIUM CARBONATE
     Indication: PRODUCT USED FOR UNKNOWN INDICATION
     Dosage: UNK, CA 500 MG NIT D 1000 U, 1 CO, DIE
  12. TUDORZA GENUAIR [Suspect]
     Active Substance: ACLIDINIUM BROMIDE
     Indication: PRODUCT USED FOR UNKNOWN INDICATION
     Dosage: 1 PUFF(S), BID

REACTIONS (22)
  - Anxiety [Unknown]
  - Dupuytren^s contracture operation [Unknown]
  - Inguinal hernia repair [Unknown]
  - Weight increased [Unknown]
  - Loss of personal independence in daily activities [Unknown]
  - Dyspnoea [Unknown]
  - Chronic obstructive pulmonary disease [Unknown]
  - Lung neoplasm [Unknown]
  - Oropharyngeal candidiasis [Unknown]
  - Insomnia [Unknown]
  - Therapeutic product effect incomplete [Unknown]
  - Fungal disease carrier [Unknown]
  - Lung diffusion disorder [Unknown]
  - Hypercapnia [Unknown]
  - Stenotrophomonas infection [Unknown]
  - Asthma [Unknown]
  - Wheezing [Unknown]
  - Emphysema [Unknown]
  - Respiratory disorder [Unknown]
  - Pneumonia [Unknown]
  - Sleep disorder due to a general medical condition [Unknown]
  - Hypertension [Unknown]

NARRATIVE: CASE EVENT DATE: 201709
